FAERS Safety Report 12547155 (Version 4)
Quarter: 2016Q3

REPORT INFORMATION
  Report Type: Report from Study
  Country: MX (occurrence: MX)
  Receive Date: 20160711
  Receipt Date: 20160916
  Transmission Date: 20161109
  Serious: Yes (Death, Hospitalization, Other)
  Sender: FDA-Public Use
  Company Number: PHHY2016MX094579

PATIENT
  Age: 83 Year
  Sex: Female
  Weight: 75 kg

DRUGS (10)
  1. CENTRUM SILVER [Concomitant]
     Active Substance: MINERALS\VITAMINS
     Indication: PRODUCT USED FOR UNKNOWN INDICATION
     Dosage: UNK UNK, QD
     Route: 065
  2. CRESTOR [Concomitant]
     Active Substance: ROSUVASTATIN CALCIUM
     Indication: PRODUCT USED FOR UNKNOWN INDICATION
     Dosage: 10 MG, QD (AT NIGHT)
     Route: 065
  3. MELOXICAM. [Concomitant]
     Active Substance: MELOXICAM
     Indication: PRODUCT USED FOR UNKNOWN INDICATION
     Dosage: 15 MG, QD (AT LUNCH TIME JUST IN CASE OF PAIN)
     Route: 065
  4. CINARIZINE [Concomitant]
     Active Substance: CINNARIZINE
     Indication: PRODUCT USED FOR UNKNOWN INDICATION
     Dosage: 75 MG, QD (AT NIGHT)
     Route: 065
  5. VERAPAMIL [Concomitant]
     Active Substance: VERAPAMIL HYDROCHLORIDE
     Indication: HYPERTENSION
     Dosage: 80 MG, TWICE AT NIGHT
     Route: 065
  6. ASPIRIN PROTECT [Concomitant]
     Active Substance: ASPIRIN
     Indication: PRODUCT USED FOR UNKNOWN INDICATION
     Dosage: 100 MG, QD (AT NIGHT)
     Route: 065
  7. DIOVAN [Suspect]
     Active Substance: VALSARTAN
     Indication: HYPERTENSION
     Dosage: 0.5 DF (160 MG), QD
     Route: 048
     Dates: start: 20151017
  8. PRADAXAR [Concomitant]
     Active Substance: DABIGATRAN ETEXILATE MESYLATE
     Indication: PRODUCT USED FOR UNKNOWN INDICATION
     Dosage: 110 MG, Q12H
     Route: 065
  9. PLAVIX [Concomitant]
     Active Substance: CLOPIDOGREL BISULFATE
     Indication: PRODUCT USED FOR UNKNOWN INDICATION
     Dosage: 75 MG, QD (AT NIGHT)
     Route: 065
  10. BRAXAN//AMIODARONE HYDROCHLORIDE [Concomitant]
     Active Substance: AMIODARONE HYDROCHLORIDE
     Indication: PRODUCT USED FOR UNKNOWN INDICATION
     Dosage: 0.5 DF, IN THE MORNING (FROM MONDAY TO FRIDAY)
     Route: 065

REACTIONS (22)
  - Atrophy [Unknown]
  - Arteriosclerosis [Unknown]
  - Cognitive disorder [Unknown]
  - Irregular breathing [Unknown]
  - Blood pressure increased [Unknown]
  - Musculoskeletal pain [Unknown]
  - Cardiac failure chronic [Unknown]
  - Asterixis [Unknown]
  - Fall [Unknown]
  - Cerebrovascular accident [Unknown]
  - Peripheral vascular disorder [Unknown]
  - Atrial fibrillation [Unknown]
  - Memory impairment [Unknown]
  - Wheezing [Unknown]
  - Gastrointestinal haemorrhage [Fatal]
  - Gastric ulcer [Unknown]
  - Dyspnoea exertional [Unknown]
  - Rales [Unknown]
  - Stenosis [Unknown]
  - Wrong technique in product usage process [Unknown]
  - Drug prescribing error [Unknown]
  - White matter lesion [Unknown]

NARRATIVE: CASE EVENT DATE: 20151017
